FAERS Safety Report 24070451 (Version 1)
Quarter: 2024Q3

REPORT INFORMATION
  Report Type: Spontaneous
  Country: JP (occurrence: JP)
  Receive Date: 20240710
  Receipt Date: 20240710
  Transmission Date: 20241016
  Serious: No
  Sender: ROCHE
  Company Number: JP-CHUGAI-2024011261

PATIENT
  Sex: Female

DRUGS (1)
  1. ALECENSA [Suspect]
     Active Substance: ALECTINIB HYDROCHLORIDE
     Indication: Product used for unknown indication
     Dosage: UNK
     Route: 065
     Dates: start: 202108

REACTIONS (6)
  - Alopecia [Unknown]
  - Gait disturbance [Unknown]
  - Oedema [Recovering/Resolving]
  - Arthralgia [Unknown]
  - Constipation [Recovering/Resolving]
  - Malaise [Unknown]
